FAERS Safety Report 7996675 (Version 5)
Quarter: 2012Q4

REPORT INFORMATION
  Report Type: 
  Country: US (occurrence: US)
  Receive Date: 20110617
  Receipt Date: 20120904
  Transmission Date: 20130627
  Serious: No
  Sender: FDA-Public Use
  Company Number: US-B.I. PHARMACEUTICALS,INC./RIDGEFIELD-2011-BP-13802BP

PATIENT
  Age: 72 Year
  Sex: Female

DRUGS (27)
  1. PRADAXA [Suspect]
     Indication: ATRIAL FIBRILLATION
     Dosage: 300 mg
     Route: 048
     Dates: start: 2010
  2. ERYTHROMYCIN [Suspect]
     Indication: BRONCHITIS
     Dosage: 250 mg
     Route: 048
     Dates: start: 20110529, end: 20110607
  3. AMOXICILLIN [Suspect]
     Indication: TOOTH INFECTION
     Route: 048
     Dates: start: 20120822, end: 20120822
  4. METOPROLOL XL [Concomitant]
     Indication: HYPERTENSION
     Dosage: 200 mg
     Route: 048
     Dates: start: 2010
  5. LISINOPRIL [Concomitant]
     Indication: HYPERTENSION
     Dosage: 20 mg
     Dates: start: 2010
  6. HCTZ [Concomitant]
     Indication: HYPERTENSION
     Dosage: 25 mg
     Route: 048
     Dates: start: 2004
  7. HCTZ [Concomitant]
     Indication: OEDEMA
  8. GLUCOTROL [Concomitant]
     Indication: DIABETES MELLITUS
     Dosage: 0.5 mg
     Route: 048
  9. LEVOXYL [Concomitant]
     Indication: HYPOTHYROIDISM
     Dosage: 50 mcg
     Route: 048
  10. TEMAZEPAM [Concomitant]
     Indication: INSOMNIA
     Route: 048
  11. DIGOXIN [Concomitant]
     Indication: HEART RATE INCREASED
     Route: 048
  12. DIGOXIN [Concomitant]
     Indication: ATRIAL FIBRILLATION
  13. SYNTHROID [Concomitant]
     Indication: HYPOTHYROIDISM
     Dosage: 50 mcg
     Route: 048
     Dates: start: 2004
  14. DIAZEPAM [Concomitant]
     Indication: ANXIETY
     Dosage: 5 mg
     Route: 048
  15. VITAMIN [Concomitant]
     Route: 048
  16. CALCIUM [Concomitant]
     Route: 048
  17. RESTORIL [Concomitant]
     Indication: SLEEP DISORDER
     Dosage: 30 mg
     Route: 048
  18. LEVOTHYROXINE [Concomitant]
     Indication: HYPOTHYROIDISM
     Dates: start: 2007
  19. PERCOCET [Concomitant]
     Indication: MUSCULOSKELETAL PAIN
     Route: 048
     Dates: start: 201111
  20. GLIPIZIDE [Concomitant]
     Indication: DIABETES MELLITUS
     Dosage: 5 mg
     Route: 048
  21. BUMEX [Concomitant]
     Indication: SWELLING
     Route: 048
  22. VALIUM [Concomitant]
     Indication: ANXIETY
     Route: 048
  23. LOPRESSOR [Concomitant]
     Indication: HYPERTENSION
     Dosage: 100 mg
     Route: 048
  24. PRILOSEC [Concomitant]
     Indication: GASTROOESOPHAGEAL REFLUX DISEASE
     Dosage: 20 mg
     Route: 048
  25. METOPROLOL [Concomitant]
     Indication: HYPERTENSION
     Dosage: 100 mg
     Route: 048
     Dates: start: 2004
  26. METOPROLOL [Concomitant]
     Dosage: 50 mg
     Route: 048
     Dates: start: 2004
  27. HYDROCHLOROTHIAZIDE [Concomitant]
     Indication: FLUID OVERLOAD
     Dosage: 25 mg
     Route: 048
     Dates: start: 2004

REACTIONS (10)
  - Diarrhoea [Recovered/Resolved]
  - Rash [Recovered/Resolved]
  - Urticaria [Recovered/Resolved]
  - Tongue pruritus [Recovered/Resolved]
  - Urinary incontinence [Not Recovered/Not Resolved]
  - Musculoskeletal pain [Not Recovered/Not Resolved]
  - Arthralgia [Not Recovered/Not Resolved]
  - Joint swelling [Not Recovered/Not Resolved]
  - Dizziness [Not Recovered/Not Resolved]
  - Tooth infection [Not Recovered/Not Resolved]
